FAERS Safety Report 5828491-X (Version None)
Quarter: 2008Q3

REPORT INFORMATION
  Report Type: 
  Country: None (occurrence: None)
  Receive Date: 20080731
  Receipt Date: 20080723
  Transmission Date: 20090109
  Serious: Yes (Hospitalization)
  Sender: FDA-Public Use
  Company Number: US-JNJFOC-20080706242

PATIENT
  Sex: Male
  Weight: 90.72 kg

DRUGS (2)
  1. DURAGESIC-100 [Suspect]
     Indication: PAIN
     Route: 062
  2. DILAUDID [Concomitant]
     Indication: BREAKTHROUGH PAIN
     Route: 048

REACTIONS (4)
  - FEMUR FRACTURE [None]
  - HIP FRACTURE [None]
  - LUMBAR VERTEBRAL FRACTURE [None]
  - SPINAL CORD COMPRESSION [None]
